FAERS Safety Report 4412730-6 (Version None)
Quarter: 2004Q2

REPORT INFORMATION
  Report Type: 
  Country: None (occurrence: None)
  Receive Date: 20040630
  Receipt Date: 20040512
  Transmission Date: 20050107
  Serious: No
  Sender: FDA-Public Use
  Company Number: 04P-163-0260473-00

PATIENT
  Age: 58 Year
  Sex: Female
  Weight: 54.4316 kg

DRUGS (7)
  1. HUMIRA [Suspect]
     Indication: RHEUMATOID ARTHRITIS
     Dosage: 40 MG, 1 IN 2 WK, SUBCUTANEOUS
     Route: 058
     Dates: start: 20030101, end: 20040401
  2. PREDNISONE [Concomitant]
  3. PROPACET 100 [Concomitant]
  4. LEVOTHYROXINE SODIUM [Concomitant]
  5. AMITRITYLINE HYDROCHLORIDE [Concomitant]
  6. ATENOLOL [Concomitant]
  7. CELECOXIB [Concomitant]

REACTIONS (1)
  - RASH [None]
